FAERS Safety Report 9815412 (Version 2)
Quarter: 2014Q1

REPORT INFORMATION
  Report Type: Report from Study
  Country: US (occurrence: US)
  Receive Date: 20140114
  Receipt Date: 20140127
  Transmission Date: 20141002
  Serious: Yes (Hospitalization)
  Sender: FDA-Public Use
  Company Number: US-ROCHE-1331941

PATIENT
  Age: 64 Year
  Sex: Female
  Weight: 69.1 kg

DRUGS (10)
  1. BEVACIZUMAB [Suspect]
     Indication: BREAST CANCER
     Dosage: DOSE LEVEL 5 MG/KG, LAST DOSE PRIOR TO SAE ON 19/NOV/2009.
     Route: 042
     Dates: start: 20081126
  2. TRASTUZUMAB [Suspect]
     Indication: BREAST CANCER
     Dosage: DOSING: 8MG/KG (544 MG; LOADING DOSE FOLLOWED BY 6MG/KG MAINTENANCE DOSE), LAST DOSE PRIOR TO SAE ON
     Route: 042
     Dates: start: 20081126
  3. DOCETAXEL [Suspect]
     Indication: BREAST CANCER
     Dosage: DOSE LEVEL 75 MG/M2, LAST DOSE PRIOR TO SAE ON 14/MAR/2009
     Route: 042
     Dates: start: 20081126
  4. CARBOPLATIN [Suspect]
     Indication: BREAST CANCER
     Dosage: DOSE LEVEL 6.0 AUC LAST DOSE PRIOR TO SAE ON 26/MAR/2009.
     Route: 042
     Dates: start: 20081126
  5. XANAX [Concomitant]
     Route: 065
     Dates: start: 19941001
  6. TOPAMAX [Concomitant]
     Route: 065
     Dates: start: 20030606
  7. ELAVIL (UNITED STATES) [Concomitant]
     Route: 065
     Dates: end: 20030606
  8. NEXIUM [Concomitant]
     Route: 065
     Dates: start: 20070901
  9. FIORINAL WITH CODEINE [Concomitant]
     Dosage: 50-325 MG AND 40-30 MG
     Route: 065
     Dates: start: 19890604
  10. MAXALT [Concomitant]
     Route: 065
     Dates: start: 19890606

REACTIONS (1)
  - Cardiac valve disease [Recovered/Resolved]
